FAERS Safety Report 13894226 (Version 1)
Quarter: 2017Q3

REPORT INFORMATION
  Report Type: Spontaneous
  Country: US (occurrence: None)
  Receive Date: 20170816
  Receipt Date: 20170816
  Transmission Date: 20171127
  Serious: Yes (Hospitalization)
  Sender: FDA-Public Use
  Company Number: None

PATIENT
  Age: 64 Year
  Sex: Male
  Weight: 126.1 kg

DRUGS (1)
  1. VANCOMYCIN [Suspect]
     Active Substance: VANCOMYCIN
     Indication: PRODUCT USED FOR UNKNOWN INDICATION
     Dates: start: 20170410, end: 20170410

REACTIONS (4)
  - Atrial fibrillation [None]
  - Acute kidney injury [None]
  - Stevens-Johnson syndrome [None]
  - Atrial flutter [None]

NARRATIVE: CASE EVENT DATE: 20170410
